FAERS Safety Report 6357602-5 (Version None)
Quarter: 2009Q3

REPORT INFORMATION
  Report Type: 
  Country: None (occurrence: None)
  Receive Date: 20090916
  Receipt Date: 20090910
  Transmission Date: 20100115
  Serious: Yes (Life-Threatening, Hospitalization, Other)
  Sender: FDA-Public Use
  Company Number: PHHY2009CA38291

PATIENT

DRUGS (8)
  1. RASILEZ [Suspect]
     Indication: BLOOD PRESSURE INCREASED
     Dosage: 150 MG DAILY
     Route: 048
     Dates: start: 20090211, end: 20090824
  2. LIPITOR [Concomitant]
     Dosage: 80 MG, UNK
  3. CARVEDILOL [Concomitant]
     Dosage: 25 MG, UNK
  4. TIAZAC [Concomitant]
     Dosage: 200 MG, QD
  5. INSULIN [Concomitant]
  6. ALLOPURINOL [Concomitant]
     Dosage: 300 MG, UNK
  7. METFORMIN HCL [Concomitant]
     Dosage: 750 MG, UNK
  8. MICARDIS [Concomitant]
     Dosage: 80 MG, BID
     Route: 048

REACTIONS (3)
  - CARDIAC FAILURE [None]
  - CARDIAC FAILURE CONGESTIVE [None]
  - HYPERKALAEMIA [None]
